FAERS Safety Report 23612699 (Version 2)
Quarter: 2024Q1

REPORT INFORMATION
  Report Type: Spontaneous
  Country: US (occurrence: US)
  Receive Date: 20240308
  Receipt Date: 20240326
  Transmission Date: 20240410
  Serious: Yes (Other)
  Sender: FDA-Public Use
  Company Number: US-MYLANLABS-2024M1021186

PATIENT
  Age: 46 Year
  Sex: Female

DRUGS (8)
  1. TRETINOIN [Suspect]
     Active Substance: TRETINOIN
     Indication: Malignant melanoma in situ
     Dosage: UNK, BID (2 DAYS A WEEK)
     Route: 061
  2. TRETINOIN [Suspect]
     Active Substance: TRETINOIN
     Dosage: UNK, QD (FOR 12 WEEKS)
     Route: 061
  3. TRETINOIN [Suspect]
     Active Substance: TRETINOIN
     Dosage: UNK, QD (DECREASED TO 4 TIMES PER WEEK)
     Route: 061
  4. TRETINOIN [Suspect]
     Active Substance: TRETINOIN
     Dosage: UNK, QD
     Route: 061
  5. IMIQUIMOD [Suspect]
     Active Substance: IMIQUIMOD
     Indication: Malignant melanoma in situ
     Dosage: UNK, BID (5 DAYS A WEEK)
     Route: 061
  6. IMIQUIMOD [Suspect]
     Active Substance: IMIQUIMOD
     Dosage: UNK, BID (FOR 12 WEEKS)
     Route: 061
  7. IMIQUIMOD [Suspect]
     Active Substance: IMIQUIMOD
     Dosage: UNK, 4XW (DECREASED TO 4 TIMES PER WEEK)
     Route: 061
  8. IMIQUIMOD [Suspect]
     Active Substance: IMIQUIMOD
     Dosage: UNK (0.5 A DAY)
     Route: 061

REACTIONS (4)
  - Therapy partial responder [Unknown]
  - Application site irritation [Unknown]
  - Application site erythema [Unknown]
  - Off label use [Unknown]
